FAERS Safety Report 8486574-2 (Version None)
Quarter: 2012Q3

REPORT INFORMATION
  Report Type: 
  Country: None (occurrence: None)
  Receive Date: 20120703
  Receipt Date: 20120625
  Transmission Date: 20120928
  Serious: Yes (Other)
  Sender: FDA-Public Use
  Company Number: US-ELI_LILLY_AND_COMPANY-US201110004506

PATIENT
  Sex: Female
  Weight: 97.506 kg

DRUGS (4)
  1. ABILIFY [Concomitant]
  2. BYETTA [Suspect]
     Dosage: UNK
     Dates: start: 20050101, end: 20080101
  3. METFORMIN HCL [Concomitant]
  4. CITALOPRAM HYDROBROMIDE [Concomitant]

REACTIONS (2)
  - GALLBLADDER OPERATION [None]
  - PANCREATITIS [None]
